FAERS Safety Report 24789254 (Version 2)
Quarter: 2025Q1

REPORT INFORMATION
  Report Type: Spontaneous
  Country: LB (occurrence: LB)
  Receive Date: 20241230
  Receipt Date: 20250103
  Transmission Date: 20250409
  Serious: Yes (Other)
  Sender: PFIZER
  Company Number: LB-MLMSERVICE-20241213-PI300733-00201-1

PATIENT
  Age: 59 Year
  Sex: Female

DRUGS (1)
  1. EPINEPHRINE\LIDOCAINE HYDROCHLORIDE [Suspect]
     Active Substance: EPINEPHRINE\LIDOCAINE HYDROCHLORIDE
     Indication: Dental local anaesthesia

REACTIONS (3)
  - Trismus [Recovered/Resolved]
  - Face oedema [Recovered/Resolved]
  - Contusion [Unknown]
